FAERS Safety Report 14413957 (Version 1)
Quarter: 2018Q1

REPORT INFORMATION
  Report Type: Spontaneous
  Country: US (occurrence: US)
  Receive Date: 20180118
  Receipt Date: 20180118
  Transmission Date: 20180509
  Serious: No
  Sender: FDA-Public Use
  Company Number: None

PATIENT
  Sex: Female

DRUGS (1)
  1. HUMIRA [Suspect]
     Active Substance: ADALIMUMAB
     Indication: CROHN^S DISEASE
     Route: 058
     Dates: start: 20170719

REACTIONS (6)
  - Injection site pain [None]
  - Arthralgia [None]
  - Injection site irritation [None]
  - Product distribution issue [None]
  - Influenza like illness [None]
  - Dyspnoea [None]
